FAERS Safety Report 5029512-7 (Version None)
Quarter: 2006Q2

REPORT INFORMATION
  Report Type: 
  Country: None (occurrence: None)
  Receive Date: 20060620
  Receipt Date: 20050825
  Transmission Date: 20061013
  Serious: No
  Sender: FDA-Public Use
  Company Number: 2005108970

PATIENT
  Age: 47 Year
  Sex: Female

DRUGS (2)
  1. ZYBAN [Suspect]
     Dosage: 150MG PER DAY
     Route: 048
     Dates: start: 20050501
  2. NICODERM [Suspect]
     Dosage: 21MG PER DAY
     Route: 062
     Dates: start: 20050501

REACTIONS (2)
  - ANXIETY [None]
  - DEPRESSION [None]
